FAERS Safety Report 20719918 (Version 3)
Quarter: 2022Q2

REPORT INFORMATION
  Report Type: Report from Study
  Country: US (occurrence: US)
  Receive Date: 20220418
  Receipt Date: 20220603
  Transmission Date: 20220721
  Serious: Yes (Hospitalization, Other)
  Sender: FDA-Public Use
  Company Number: US-GILEAD-2022-0578136

PATIENT
  Sex: Female

DRUGS (3)
  1. AMBRISENTAN [Suspect]
     Active Substance: AMBRISENTAN
     Indication: Pulmonary hypertension
     Dosage: 10 MG, QD
     Route: 065
     Dates: start: 20220309
  2. TYVASO [Suspect]
     Active Substance: TREPROSTINIL
     Indication: Product used for unknown indication
     Dosage: 12 BREATHS
     Route: 065
  3. TYVASO [Suspect]
     Active Substance: TREPROSTINIL
     Dosage: 10 BREATHS
     Route: 065

REACTIONS (7)
  - Myocardial infarction [Unknown]
  - Syncope [Unknown]
  - Scleroderma [Unknown]
  - Left ventricular failure [Not Recovered/Not Resolved]
  - Oxygen consumption increased [Unknown]
  - Malaise [Not Recovered/Not Resolved]
  - Flushing [Unknown]
